FAERS Safety Report 13343050 (Version 1)
Quarter: 2017Q1

REPORT INFORMATION
  Report Type: Report from Study
  Country: US (occurrence: US)
  Receive Date: 20170316
  Receipt Date: 20170316
  Transmission Date: 20170428
  Serious: Yes (Hospitalization)
  Sender: FDA-Public Use
  Company Number: US-MALLINCKRODT-T201700915

PATIENT
  Sex: Male
  Weight: 77 kg

DRUGS (2)
  1. NIVOLUMAB (VMS-936558) [Suspect]
     Active Substance: NIVOLUMAB
     Indication: PROSTATE CANCER
     Dosage: 240 MG, SINGLE
     Route: 042
     Dates: start: 20161019, end: 20161019
  2. ROXICODONE [Suspect]
     Active Substance: OXYCODONE HYDROCHLORIDE
     Indication: PRODUCT USED FOR UNKNOWN INDICATION
     Dosage: UNK
     Route: 065

REACTIONS (11)
  - Hypomagnesaemia [Recovered/Resolved]
  - Hypoalbuminaemia [Unknown]
  - Diarrhoea [Unknown]
  - Fall [Recovered/Resolved]
  - Dehydration [Unknown]
  - Hypocalcaemia [Unknown]
  - Aspartate aminotransferase increased [Unknown]
  - Muscular weakness [Unknown]
  - Pneumonia [Unknown]
  - Anaemia [Unknown]
  - Hypophosphataemia [Unknown]

NARRATIVE: CASE EVENT DATE: 20161026
